FAERS Safety Report 17909887 (Version 1)
Quarter: 2020Q2

REPORT INFORMATION
  Report Type: Spontaneous
  Country: US (occurrence: US)
  Receive Date: 20200618
  Receipt Date: 20200618
  Transmission Date: 20200714
  Serious: Yes (Hospitalization)
  Sender: FDA-Public Use
  Company Number: US-PACIRA-202000204

PATIENT

DRUGS (2)
  1. EXPAREL [Suspect]
     Active Substance: BUPIVACAINE
     Indication: CAESAREAN SECTION
     Dosage: MOTHER RECEIVED VIA INFUSION AND NEONATE VIA BREAST MILK
     Route: 063
  2. BUPIVACAINE HYDROCHLORIDE. [Suspect]
     Active Substance: BUPIVACAINE HYDROCHLORIDE
     Indication: CAESAREAN SECTION
     Dosage: MOTHER RECEIVED VIA INFUSION AND NEONATE VIA BREAST MILK
     Route: 063

REACTIONS (2)
  - Transient tachypnoea of the newborn [Unknown]
  - Exposure via breast milk [Unknown]
